FAERS Safety Report 9513801 (Version 1)
Quarter: 2013Q3

REPORT INFORMATION
  Report Type: Spontaneous
  Country: US (occurrence: US)
  Receive Date: 20130910
  Receipt Date: 20130910
  Transmission Date: 20140515
  Serious: No
  Sender: FDA-Public Use
  Company Number: US-ASTRAZENECA-2013SE50288

PATIENT
  Age: 81 Year
  Sex: Female
  Weight: 43.1 kg

DRUGS (5)
  1. SYMBICORT [Suspect]
     Indication: CHRONIC OBSTRUCTIVE PULMONARY DISEASE
     Dosage: 160-4.5, DAILY
     Route: 055
     Dates: start: 20130508
  2. LEVOTHYROXINE [Concomitant]
     Dosage: NR NR
  3. VERAPAMIL [Concomitant]
     Dosage: NR NR
  4. SPIRIVA [Concomitant]
     Dosage: NR NR
  5. PRAVASTATIN [Concomitant]
     Dosage: NR NR

REACTIONS (3)
  - Dysphonia [Unknown]
  - Aphonia [Unknown]
  - Intentional drug misuse [Unknown]
